FAERS Safety Report 7373560-9 (Version None)
Quarter: 2011Q1

REPORT INFORMATION
  Report Type: 
  Country: None (occurrence: None)
  Receive Date: 20110325
  Receipt Date: 20110316
  Transmission Date: 20110831
  Serious: No
  Sender: FDA-Public Use
  Company Number: US-BIOGENIDEC-2011BI010233

PATIENT
  Sex: Female

DRUGS (1)
  1. AVONEX [Suspect]
     Indication: MULTIPLE SCLEROSIS
     Route: 030
     Dates: start: 19980315

REACTIONS (4)
  - BALANCE DISORDER [None]
  - TEMPERATURE INTOLERANCE [None]
  - PERONEAL NERVE PALSY [None]
  - DEPRESSED MOOD [None]
